FAERS Safety Report 7511083-4 (Version None)
Quarter: 2011Q2

REPORT INFORMATION
  Report Type: 
  Country: None (occurrence: None)
  Receive Date: 20110519
  Receipt Date: 20110504
  Transmission Date: 20111010
  Serious: Yes (Hospitalization, Other)
  Sender: FDA-Public Use
  Company Number: 2011MA005252

PATIENT
  Age: 29 Year
  Sex: Male

DRUGS (1)
  1. CAPSAICIN CREAM 0.075%, OTC (AMALLC) (CAPSAICIN) [Suspect]
     Indication: BACK PAIN
     Dosage: TDER
     Route: 062

REACTIONS (3)
  - INCORRECT DRUG ADMINISTRATION DURATION [None]
  - ACUTE MYOCARDIAL INFARCTION [None]
  - ARTERIOSPASM CORONARY [None]
